FAERS Safety Report 19156792 (Version 1)
Quarter: 2021Q2

REPORT INFORMATION
  Report Type: Spontaneous
  Country: US (occurrence: US)
  Receive Date: 20210419
  Receipt Date: 20210419
  Transmission Date: 20210717
  Serious: Yes (Disabling)
  Sender: FDA-Public Use
  Company Number: None

PATIENT
  Age: 27 Year
  Sex: Male
  Weight: 81 kg

DRUGS (1)
  1. DEXTROAMPHET SACCHARAT, AMPHET ASPARTATE, DEXTROAMPHET SULFATE AND AMPHET SULFAT [Suspect]
     Active Substance: AMPHETAMINE ASPARTATE\AMPHETAMINE SULFATE\DEXTROAMPHETAMINE SACCHARATE\DEXTROAMPHETAMINE SULFATE
     Indication: ATTENTION DEFICIT HYPERACTIVITY DISORDER
     Dosage: ?          QUANTITY:1 TABLET(S);?
     Route: 048
     Dates: start: 20210316, end: 20210419

REACTIONS (28)
  - Drug ineffective [None]
  - Hyperhidrosis [None]
  - Product substitution issue [None]
  - Therapeutic product effect incomplete [None]
  - Somnolence [None]
  - Crying [None]
  - Hypoaesthesia [None]
  - Dissociation [None]
  - Erythema [None]
  - Rash [None]
  - Chest pain [None]
  - Haemorrhage [None]
  - Chest discomfort [None]
  - Neck pain [None]
  - Hypersomnia [None]
  - Diarrhoea [None]
  - Decreased appetite [None]
  - Anger [None]
  - Intentional product use issue [None]
  - Back pain [None]
  - Bruxism [None]
  - Tooth fracture [None]
  - Blood pressure increased [None]
  - Depression [None]
  - Nerve compression [None]
  - Rectal prolapse [None]
  - Anal fissure [None]
  - Heart rate increased [None]

NARRATIVE: CASE EVENT DATE: 20210325
